FAERS Safety Report 10644666 (Version 1)
Quarter: 2014Q4

REPORT INFORMATION
  Report Type: Spontaneous
  Country: GB (occurrence: GB)
  Receive Date: 20141210
  Receipt Date: 20141210
  Transmission Date: 20150529
  Serious: Yes (Disabling)
  Sender: FDA-Public Use
  Company Number: PHHY2014GB158479

PATIENT

DRUGS (1)
  1. PROPRANOLOL [Suspect]
     Active Substance: PROPRANOLOL\PROPRANOLOL HYDROCHLORIDE
     Indication: HEADACHE
     Dosage: 1 DF, QD
     Route: 048
     Dates: start: 201408

REACTIONS (5)
  - Peripheral swelling [Not Recovered/Not Resolved]
  - Urine analysis abnormal [Recovering/Resolving]
  - Discomfort [Unknown]
  - Heart rate decreased [Recovered/Resolved]
  - Lacrimation increased [Unknown]

NARRATIVE: CASE EVENT DATE: 201408
